FAERS Safety Report 7526344-2 (Version None)
Quarter: 2011Q2

REPORT INFORMATION
  Report Type: 
  Country: None (occurrence: None)
  Receive Date: 20110603
  Receipt Date: 20110603
  Transmission Date: 20111010
  Serious: Yes (Hospitalization)
  Sender: FDA-Public Use
  Company Number: None

PATIENT
  Weight: 52.6173 kg

DRUGS (2)
  1. DOCETAXEL [Suspect]
     Indication: LUNG CANCER METASTATIC
     Dosage: 90MG EVERY 21 DAYS IV
     Route: 042
     Dates: start: 20110318, end: 20110502
  2. APRICOXIB 100MG TRAGARA PHARMACEUTICALS [Suspect]
     Dosage: 400MG ONCE DAILY PO
     Route: 048
     Dates: start: 20110307, end: 20110513

REACTIONS (4)
  - ASTHENIA [None]
  - BRONCHITIS [None]
  - PRODUCTIVE COUGH [None]
  - DYSPNOEA [None]
